FAERS Safety Report 6244397-9 (Version None)
Quarter: 2009Q2

REPORT INFORMATION
  Report Type: 
  Country: None (occurrence: None)
  Receive Date: 20090623
  Receipt Date: 20090623
  Transmission Date: 20091009
  Serious: Yes (Disabling, Other)
  Sender: FDA-Public Use
  Company Number: None

PATIENT
  Age: 57 Year
  Sex: Female
  Weight: 99.7913 kg

DRUGS (1)
  1. VENLAFAXINE HCL EXTENDED-RELEASE [Suspect]
     Indication: MAJOR DEPRESSION
     Dosage: 2 TABS = 300 MG. 1 X DAY ORAL
     Route: 048
     Dates: start: 20090322, end: 20090516

REACTIONS (3)
  - MEDICATION RESIDUE [None]
  - PRODUCT QUALITY ISSUE [None]
  - PRODUCT SUBSTITUTION ISSUE [None]
